FAERS Safety Report 13592902 (Version 10)
Quarter: 2018Q2

REPORT INFORMATION
  Report Type: Spontaneous
  Country: CA (occurrence: CA)
  Receive Date: 20170530
  Receipt Date: 20180615
  Transmission Date: 20180711
  Serious: Yes (Hospitalization, Other)
  Sender: FDA-Public Use
  Company Number: CA-CELLTRION INC.-2017CA006873

PATIENT

DRUGS (6)
  1. INFLECTRA [Suspect]
     Active Substance: INFLIXIMAB-DYYB
     Dosage: 600 MG, CYCLIC (EVERY 6  WEEKS)
     Route: 042
     Dates: start: 20180305
  2. INFLECTRA [Suspect]
     Active Substance: INFLIXIMAB-DYYB
     Indication: CROHN^S DISEASE
     Dosage: 400 MG, Q 2, 6 WEEKS, THEN EVERY 8 WEEKS
     Route: 042
     Dates: start: 20170425
  3. INFLECTRA [Suspect]
     Active Substance: INFLIXIMAB-DYYB
     Indication: COLITIS ULCERATIVE
     Dosage: 600 MG,  EVERY 6 WEEKS
     Route: 042
     Dates: start: 2017, end: 2017
  4. INFLECTRA [Suspect]
     Active Substance: INFLIXIMAB-DYYB
     Dosage: 600 MG, CYCLIC, EVERY 6 WEEKS
     Route: 042
     Dates: start: 20180103, end: 20180103
  5. INFLECTRA [Suspect]
     Active Substance: INFLIXIMAB-DYYB
     Dosage: 600 MG, CYCLIC
     Route: 042
     Dates: start: 20180604
  6. AZATHIOPRINE. [Concomitant]
     Active Substance: AZATHIOPRINE
     Dosage: UNK

REACTIONS (8)
  - Coma [Unknown]
  - Hyperthermia [Unknown]
  - Intestinal haemorrhage [Recovering/Resolving]
  - Product use issue [Unknown]
  - Blood pressure fluctuation [Unknown]
  - Productive cough [Not Recovered/Not Resolved]
  - Pneumonia legionella [Unknown]
  - Weight increased [Unknown]

NARRATIVE: CASE EVENT DATE: 2017
